FAERS Safety Report 4820379-6 (Version None)
Quarter: 2005Q4

REPORT INFORMATION
  Report Type: 
  Country: None (occurrence: None)
  Receive Date: 20051014
  Receipt Date: 20050906
  Transmission Date: 20060501
  Serious: No
  Sender: FDA-Public Use
  Company Number: 2005SP002654

PATIENT
  Age: 84 Year
  Sex: Female
  Weight: 56.6996 kg

DRUGS (6)
  1. LUNESTA [Suspect]
     Indication: INSOMNIA
     Dosage: 2 MG;HS;ORAL
     Route: 048
     Dates: start: 20050101, end: 20050101
  2. ATORVASTATIN CALCIUM [Concomitant]
  3. ADVIL [Concomitant]
  4. DIPHENHYDRAMINE HCL [Concomitant]
  5. HYDROCHLORIDE [Concomitant]
  6. PREVACID [Concomitant]

REACTIONS (1)
  - DYSGEUSIA [None]
